FAERS Safety Report 10110968 (Version 1)
Quarter: 2014Q2

REPORT INFORMATION
  Report Type: Spontaneous
  Country: US (occurrence: None)
  Receive Date: 20140421
  Receipt Date: 20140421
  Transmission Date: 20141212
  Serious: No
  Sender: FDA-Public Use
  Company Number: AEGR000327

PATIENT
  Age: 46 Year
  Sex: Female
  Weight: 111.6 kg

DRUGS (10)
  1. JUXTAPID (LOMITAPIDE) CAPSULE, 5MG [Suspect]
     Indication: TYPE IIA HYPERLIPIDAEMIA
     Route: 048
     Dates: start: 20140209
  2. FENOFIBRATE (FENOFIBRATE) [Concomitant]
  3. LOVASTATIN (LOVASTATIN) [Concomitant]
  4. LISINOPRIL/HCTZ (HYDROCHLOROTHIAZIDE, LISINOPRIL) [Concomitant]
  5. LEVOTHYROXINE SODIUM (LEVOTHYRORXINE SODIUM) [Concomitant]
  6. ASPIRIN (ACETYLSALICYLIC ACID) [Concomitant]
  7. BIOTIN (BIOTIN) [Concomitant]
  8. VITAMIN E (TOCOPHEROL) [Concomitant]
  9. OMEGA 3 (FISH OIL) [Concomitant]
  10. NITROGLYCERINE (GLYCERYL TRINITRATE) [Concomitant]

REACTIONS (1)
  - Weight decreased [None]
